FAERS Safety Report 6860685-7 (Version None)
Quarter: 2010Q3

REPORT INFORMATION
  Report Type: 
  Country: None (occurrence: None)
  Receive Date: 20100720
  Receipt Date: 20100708
  Transmission Date: 20110219
  Serious: Yes (Hospitalization)
  Sender: FDA-Public Use
  Company Number: FR-JNJFOC-20100703095

PATIENT
  Age: 62 Year
  Sex: Female

DRUGS (14)
  1. DOXORUBICIN HCL [Suspect]
     Indication: OVARIAN EPITHELIAL CANCER
     Dosage: CYCLE 1 DAY 1 (C1D1)  30 MG/M2 QD (OR 60 MG TOTAL DOSE) D1-29 THEN 100 MG DEPENDING ON CYCLE (NOS)
     Route: 042
  2. DOXORUBICIN HCL [Suspect]
     Dosage: CYCLE 4 DAY 1 (C4D1)30 MG/M2 QD (OR 60 MG TOTAL DOSE) D1-29 THEN 100 MG DEPENDING ON CYCLE (NOS)
     Route: 042
  3. DOXORUBICIN HCL [Suspect]
     Dosage: CYCLE 5 DAY 1 (C5D1)30 MG/M2 QD (OR 60 MG TOTAL DOSE) D1-29 THEN 100 MG DEPENDING ON CYCLE (NOS)
     Route: 042
  4. DOXORUBICIN HCL [Suspect]
     Dosage: CYCLE 2 DAY 1 (C2D1)30 MG/M2 QD (OR 60 MG TOTAL DOSE) D1-29 THEN 100 MG DEPENDING ON CYCLE (NOS)
     Route: 042
  5. DOXORUBICIN HCL [Suspect]
     Route: 042
  6. DOXORUBICIN HCL [Suspect]
     Dosage: CYCLE 3 DAY 1 (C3D1)30 MG/M2 QD (OR 60 MG TOTAL DOSE) D1-29 THEN 100 MG DEPENDING ON CYCLE (NOS)
     Route: 042
  7. CARBOPLATIN [Suspect]
     Indication: OVARIAN EPITHELIAL CANCER
     Dosage: 535MG (AUC 5) PER CYCLE
     Route: 065
  8. NASONEX [Concomitant]
     Dosage: 1 DF
     Route: 065
  9. TARKA [Concomitant]
     Dosage: 1 DF
     Route: 065
  10. VASTAREL [Concomitant]
     Dosage: 1 DF
     Route: 065
  11. ESIDRIX [Concomitant]
     Dosage: 1 DF QAM
     Route: 065
  12. PRAVASTATIN SODIUM [Concomitant]
     Dosage: 1 DF QPM
     Route: 065
  13. DAFALGAN [Concomitant]
     Dosage: 2 DF
     Route: 065
  14. XYZAL [Concomitant]
     Dosage: 1 DF
     Route: 065

REACTIONS (4)
  - NEUROPATHY PERIPHERAL [None]
  - RASH MACULO-PAPULAR [None]
  - RASH PRURITIC [None]
  - URTICARIA [None]
